FAERS Safety Report 5284512-7 (Version None)
Quarter: 2007Q2

REPORT INFORMATION
  Report Type: 
  Country: None (occurrence: None)
  Receive Date: 20070403
  Receipt Date: 20070327
  Transmission Date: 20071010
  Serious: Yes (Hospitalization)
  Sender: FDA-Public Use
  Company Number: DE-AVENTIS-200710793DE

PATIENT
  Age: 63 Year
  Sex: Female
  Weight: 72 kg

DRUGS (3)
  1. DOCETAXEL [Suspect]
     Indication: BREAST CANCER
     Route: 041
     Dates: start: 20070123, end: 20070123
  2. GEMCITABINE [Suspect]
     Indication: BREAST CANCER
     Route: 041
     Dates: start: 20070123, end: 20070123
  3. DEXAMETHASONE [Suspect]
     Indication: CHEMOTHERAPY
     Route: 042
     Dates: start: 20070123, end: 20070123

REACTIONS (2)
  - HYPERGLYCAEMIA [None]
  - VAGINAL INFECTION [None]
